FAERS Safety Report 9255172 (Version 2)
Quarter: 2014Q1

REPORT INFORMATION
  Report Type: Spontaneous
  Country: US (occurrence: None)
  Receive Date: 20121212
  Receipt Date: 20130314
  Transmission Date: 20141002
  Serious: No
  Sender: FDA-Public Use
  Company Number: 1211USA003505

PATIENT
  Age: 46 Year
  Sex: Male

DRUGS (8)
  1. VICTRELIS [Suspect]
     Indication: HEPATITIS C
     Route: 048
     Dates: start: 20121013, end: 2012
  2. RIBAPAK [Suspect]
     Dates: start: 20121013
  3. PEGASYS (PEGINTERFERON ALFA-2A) [Suspect]
     Dates: start: 20121013
  4. LOSARTAN POTASSIUM ( LOSARTAN POTASSIUM) [Concomitant]
  5. METFORMIN ( METFORMIN) [Concomitant]
  6. DIAZEPAM ( DIAZEPAM) [Concomitant]
  7. ASPIRIN ( ASPIRIN) [Concomitant]
  8. PREVACID ( LANSOPRAZOLE) [Concomitant]

REACTIONS (4)
  - Skin discolouration [None]
  - Erythema [None]
  - Fatigue [None]
  - Back pain [None]
